FAERS Safety Report 9232751 (Version 1)
Quarter: 2013Q1

REPORT INFORMATION
  Report Type: Spontaneous
  Country: US (occurrence: None)
  Receive Date: 20121031
  Receipt Date: 20121031
  Transmission Date: 20140127
  Serious: No
  Sender: FDA-Public Use
  Company Number: PHEH2012US011921

PATIENT
  Age: 46 Year
  Sex: Female
  Weight: 79.4 kg

DRUGS (10)
  1. GILENYA (FTY) CAPSULE [Suspect]
     Indication: MULTIPLE SCLEROSIS
     Dosage: 1 DF, QD, ORAL
  2. NECON (ETHINYLESTRADIOL, NORETHISTERONE) [Concomitant]
  3. TIMOLOL (TIMOLOL) (NONE) [Concomitant]
  4. LORAZEPAM (LORAZEPAM) [Concomitant]
  5. NEURONTIN (GABAPENTIN) [Concomitant]
  6. ZANTAC (RANITIDINE HYDROCHLORIDE) [Concomitant]
  7. MULTIVITAMIN (VITAMINS NOS) [Concomitant]
  8. VITAMIN C [Concomitant]
  9. VITAMIN D (ERGOCALCIFEROL) [Concomitant]
  10. LISINOPRIL (LISINOPRIL) [Concomitant]

REACTIONS (4)
  - Neuralgia [None]
  - Insomnia [None]
  - Blood pressure abnormal [None]
  - Diarrhoea [None]
